FAERS Safety Report 15609523 (Version 1)
Quarter: 2018Q4

REPORT INFORMATION
  Report Type: Spontaneous
  Country: IT (occurrence: IT)
  Receive Date: 20181112
  Receipt Date: 20181112
  Transmission Date: 20190205
  Serious: Yes (Other)
  Sender: FDA-Public Use
  Company Number: IT-ABBVIE-18K-083-2552714-00

PATIENT
  Age: 56 Year
  Sex: Female

DRUGS (4)
  1. GLECAPREVIR [Concomitant]
     Active Substance: GLECAPREVIR
     Indication: PRODUCT USED FOR UNKNOWN INDICATION
  2. MAVIRET [Suspect]
     Active Substance: GLECAPREVIR\PIBRENTASVIR
     Indication: HEPATITIS C
     Dosage: MAVIRET 100 MG/40 MG FILM-COATED TABLETS?CUMULATIVE DOSE-15 DOSAGE FORM
     Route: 048
     Dates: start: 20181006, end: 20181011
  3. ODEFSEY [Concomitant]
     Active Substance: EMTRICITABINE\RILPIVIRINE HYDROCHLORIDE\TENOFOVIR ALAFENAMIDE FUMARATE
     Indication: HIV INFECTION
     Dosage: 200 MG/25 MG/25 MG FILM-COATED TABLETS
  4. PIBRENTASVIR [Concomitant]
     Active Substance: PIBRENTASVIR
     Indication: HEPATITIS C
     Dates: start: 20181006, end: 20181011

REACTIONS (1)
  - Rash pruritic [Unknown]

NARRATIVE: CASE EVENT DATE: 20181010
